FAERS Safety Report 20722423 (Version 1)
Quarter: 2022Q2

REPORT INFORMATION
  Report Type: Spontaneous
  Country: US (occurrence: US)
  Receive Date: 20220418
  Receipt Date: 20220418
  Transmission Date: 20220720
  Serious: Yes (Hospitalization, Other)
  Sender: FDA-Public Use
  Company Number: US-GW PHARMA-2022-US-011422

PATIENT
  Sex: Male

DRUGS (4)
  1. EPIDIOLEX [Suspect]
     Active Substance: CANNABIDIOL
     Indication: Seizure
     Dosage: 400 MILLIGRAM
     Route: 048
     Dates: start: 20201007, end: 20220331
  2. HYDROXYZINE PAMOATE [Concomitant]
     Active Substance: HYDROXYZINE PAMOATE
  3. TRAZODONE [Concomitant]
     Active Substance: TRAZODONE HYDROCHLORIDE
  4. CLOBAZAM [Concomitant]
     Active Substance: CLOBAZAM

REACTIONS (5)
  - Lethargy [Not Recovered/Not Resolved]
  - Somnolence [Not Recovered/Not Resolved]
  - Decreased appetite [Not Recovered/Not Resolved]
  - Urinary retention [Unknown]
  - Gait inability [Unknown]
